FAERS Safety Report 13900947 (Version 1)
Quarter: 2017Q3

REPORT INFORMATION
  Report Type: Other
  Country: CA (occurrence: CA)
  Receive Date: 20170824
  Receipt Date: 20170824
  Transmission Date: 20171127
  Serious: Yes (Other)
  Sender: FDA-Public Use
  Company Number: CA-APOTEX-2017AP016782

PATIENT
  Age: 70 Year
  Sex: Female

DRUGS (2)
  1. APO-IMATINIB [Suspect]
     Active Substance: IMATINIB
     Indication: EOSINOPHILIA
  2. APO-IMATINIB [Suspect]
     Active Substance: IMATINIB
     Indication: GASTROINTESTINAL STROMAL TUMOUR
     Dosage: 400 MG, UNK
     Route: 048

REACTIONS (3)
  - Abdominal pain [Unknown]
  - Haemoglobin decreased [Unknown]
  - Hepatic mass [Unknown]
